FAERS Safety Report 4746709-1 (Version None)
Quarter: 2005Q3

REPORT INFORMATION
  Report Type: 
  Country: None (occurrence: None)
  Receive Date: 20050817
  Receipt Date: 20050627
  Transmission Date: 20060218
  Serious: Yes (Death)
  Sender: FDA-Public Use
  Company Number: US-GLAXOSMITHKLINE-A0564635A

PATIENT
  Age: 38 Year
  Sex: Male

DRUGS (1)
  1. WELLBUTRIN [Suspect]
     Indication: DRUG USE FOR UNKNOWN INDICATION
     Dates: start: 20030501, end: 20030601

REACTIONS (9)
  - AGGRESSION [None]
  - AGITATION [None]
  - ANXIETY [None]
  - COMPLETED SUICIDE [None]
  - CRYING [None]
  - EMOTIONAL DISORDER [None]
  - IRRITABILITY [None]
  - SOCIAL AVOIDANT BEHAVIOUR [None]
  - TREMOR [None]
